FAERS Safety Report 16577306 (Version 4)
Quarter: 2020Q2

REPORT INFORMATION
  Report Type: Report from Study
  Country: IT (occurrence: IT)
  Receive Date: 20190716
  Receipt Date: 20200408
  Transmission Date: 20200713
  Serious: Yes (Other)
  Sender: FDA-Public Use
  Company Number: IT-AUROBINDO-AUR-APL-2019-040028

PATIENT
  Sex: Female

DRUGS (2)
  1. LAMOTRIGINE. [Suspect]
     Active Substance: LAMOTRIGINE
     Indication: PRODUCT USED FOR UNKNOWN INDICATION
     Dosage: UNK
     Route: 065
  2. PARACETAMOL [Interacting]
     Active Substance: ACETAMINOPHEN
     Indication: DYSMENORRHOEA
     Dosage: UNK
     Route: 065

REACTIONS (3)
  - Toxicity to various agents [Unknown]
  - Seizure [Unknown]
  - Drug interaction [Unknown]
